FAERS Safety Report 8452617-5 (Version None)
Quarter: 2012Q2

REPORT INFORMATION
  Report Type: 
  Country: None (occurrence: None)
  Receive Date: 20120620
  Receipt Date: 20120522
  Transmission Date: 20120825
  Serious: No
  Sender: FDA-Public Use
  Company Number: US-VERTEX PHARMACEUTICALS INC.-AE-2012-005693

PATIENT
  Sex: Female
  Weight: 53.572 kg

DRUGS (3)
  1. INCIVEK [Suspect]
     Indication: HEPATITIS C
     Route: 048
     Dates: start: 20120301, end: 20120520
  2. COPEGUS [Concomitant]
     Indication: HEPATITIS C
     Route: 048
     Dates: start: 20120301
  3. PEGASYS [Concomitant]
     Indication: HEPATITIS C
     Route: 058
     Dates: start: 20120301

REACTIONS (7)
  - NAUSEA [None]
  - DRUG DOSE OMISSION [None]
  - RASH GENERALISED [None]
  - RASH PAPULAR [None]
  - DIARRHOEA [None]
  - PRURITUS [None]
  - VOMITING [None]
